FAERS Safety Report 24887829 (Version 2)
Quarter: 2025Q2

REPORT INFORMATION
  Report Type: Report from Study
  Country: CA (occurrence: CA)
  Receive Date: 20250127
  Receipt Date: 20250519
  Transmission Date: 20250716
  Serious: Yes (Hospitalization, Other)
  Sender: TAKEDA
  Company Number: CA-TAKEDA-2025TUS008473

PATIENT
  Sex: Male

DRUGS (5)
  1. VEDOLIZUMAB [Suspect]
     Active Substance: VEDOLIZUMAB
     Indication: Colitis ulcerative
  2. VEDOLIZUMAB [Suspect]
     Active Substance: VEDOLIZUMAB
     Indication: Colitis ulcerative
     Dosage: 108 MILLIGRAM, Q2WEEKS
     Dates: start: 20250218
  3. MESALAMINE [Concomitant]
     Active Substance: MESALAMINE
  4. PURINETHOL [Concomitant]
     Active Substance: MERCAPTOPURINE
  5. Salofalk [Concomitant]

REACTIONS (2)
  - Clostridium difficile colitis [Unknown]
  - Colitis ulcerative [Unknown]
